FAERS Safety Report 19732338 (Version 3)
Quarter: 2021Q3

REPORT INFORMATION
  Report Type: Spontaneous
  Country: US (occurrence: US)
  Receive Date: 20210822
  Receipt Date: 20210922
  Transmission Date: 20211014
  Serious: Yes (Other)
  Sender: FDA-Public Use
  Company Number: US-TEVA-2021-US-1943320

PATIENT
  Age: 65 Year
  Sex: Male

DRUGS (1)
  1. FENTANYL. [Suspect]
     Active Substance: FENTANYL
     Indication: PAIN
     Route: 062

REACTIONS (5)
  - Product storage error [Unknown]
  - Imprisonment [Not Recovered/Not Resolved]
  - Pain [Unknown]
  - Drug abuse [Unknown]
  - Expired product administered [Unknown]
